FAERS Safety Report 24316857 (Version 1)
Quarter: 2024Q3

REPORT INFORMATION
  Report Type: Spontaneous
  Country: US (occurrence: US)
  Receive Date: 20240913
  Receipt Date: 20240913
  Transmission Date: 20241016
  Serious: No
  Sender: AVERITAS
  Company Number: US-GRUNENTHAL-2024-125126

PATIENT
  Age: 69 Year
  Sex: Female

DRUGS (4)
  1. QUTENZA [Suspect]
     Active Substance: CAPSAICIN
     Indication: Neuropathy peripheral
     Dosage: 2 DOSAGE FORM, ONCE
     Route: 003
     Dates: start: 202409, end: 202409
  2. MORPHINE [Concomitant]
     Active Substance: MORPHINE
     Dosage: UNK, 2/DAY
     Route: 065
  3. TRAMADOL [Concomitant]
     Active Substance: TRAMADOL\TRAMADOL HYDROCHLORIDE
     Dosage: UNK, 3/DAY
     Route: 065
  4. GABAPENTIN [Concomitant]
     Active Substance: GABAPENTIN
     Dosage: 800 MILLIGRAM, 2/DAY
     Route: 065

REACTIONS (6)
  - Application site pain [Unknown]
  - Application site pain [Unknown]
  - Application site pain [Unknown]
  - Application site discomfort [Unknown]
  - Product use issue [Unknown]
  - Peripheral swelling [Unknown]
